FAERS Safety Report 10168068 (Version 1)
Quarter: 2014Q2

REPORT INFORMATION
  Report Type: Spontaneous
  Country: FI (occurrence: FI)
  Receive Date: 20140512
  Receipt Date: 20140512
  Transmission Date: 20141212
  Serious: Yes (Other)
  Sender: FDA-Public Use
  Company Number: PHHY2014FI056353

PATIENT
  Sex: Female

DRUGS (1)
  1. GILENYA [Suspect]
     Indication: MULTIPLE SCLEROSIS
     Dosage: UNK
     Route: 048
     Dates: start: 20140128

REACTIONS (10)
  - Sensory loss [Not Recovered/Not Resolved]
  - Muscular weakness [Unknown]
  - Musculoskeletal stiffness [Unknown]
  - Eye oedema [Unknown]
  - Pupillary disorder [Unknown]
  - Vision blurred [Unknown]
  - Nasopharyngitis [Unknown]
  - Feeling cold [Unknown]
  - Sneezing [Unknown]
  - Asthenia [Recovered/Resolved]
